FAERS Safety Report 7585589-6 (Version None)
Quarter: 2011Q2

REPORT INFORMATION
  Report Type: 
  Country: None (occurrence: None)
  Receive Date: 20110624
  Receipt Date: 20110609
  Transmission Date: 20111010
  Serious: Yes (Death, Hospitalization)
  Sender: FDA-Public Use
  Company Number: 1000021436

PATIENT
  Age: 71 Year
  Sex: Female

DRUGS (15)
  1. ROFLUMILAST (ROFLUMILAST) (TABLETS) [Suspect]
     Indication: CHRONIC OBSTRUCTIVE PULMONARY DISEASE
     Dosage: 500 MCG (500 MCG, 1 IN 1 D)
     Dates: start: 20110512
  2. KALCIPOS (CALCIUM CARBONATE) (CALCIUM CARBONATE) [Concomitant]
  3. IMDUR [Concomitant]
  4. LASIX [Concomitant]
  5. BISOPROLOL FUMARATE [Concomitant]
  6. SIMVATATIN (SIMVASTATIN) (SIMVASTATIN) [Concomitant]
  7. SYMBICORT (BUDESONIDE, FORMOTEROL FUMARATE) (BUDESONIDE, FORMOTEROL FU [Concomitant]
  8. WARAN (WARFARIN SODIUM) (WARFARIN SODIUM) [Concomitant]
  9. OMEPRAZOLE [Concomitant]
  10. ACETYLCYSTEIN (ACETYLCYSTEINE) (ACETYLCYSTEINE) [Concomitant]
  11. ATACAND [Concomitant]
  12. DIGOXIN [Concomitant]
  13. ACLASTA (ZOLEDRONIC ACID) (ZOLEDRONIC ACID) [Concomitant]
  14. SPIRONOLACTON (SPIRONOLACTONE) (SPIRONOLACTONE) [Concomitant]
  15. SPIRIVA (TIOTROPIUM BROMIDE) (TIOTROPIUM BROMIDE) [Concomitant]

REACTIONS (5)
  - DIARRHOEA HAEMORRHAGIC [None]
  - AORTIC ANEURYSM [None]
  - INTERNATIONAL NORMALISED RATIO INCREASED [None]
  - MYOCARDIAL INFARCTION [None]
  - VOMITING [None]
